FAERS Safety Report 7350279-1 (Version None)
Quarter: 2011Q1

REPORT INFORMATION
  Report Type: 
  Country: None (occurrence: None)
  Receive Date: 20110314
  Receipt Date: 20110304
  Transmission Date: 20110831
  Serious: Yes (Other)
  Sender: FDA-Public Use
  Company Number: US-ELI_LILLY_AND_COMPANY-US201103002169

PATIENT
  Sex: Male

DRUGS (2)
  1. STRATTERA [Suspect]
     Indication: ATTENTION DEFICIT/HYPERACTIVITY DISORDER
     Dosage: 1 D/F, UNK
     Dates: start: 20101229
  2. STRATTERA [Suspect]
     Dosage: 40 MG, UNK
     Dates: end: 20110224

REACTIONS (2)
  - CHEST PAIN [None]
  - SUICIDAL IDEATION [None]
